FAERS Safety Report 9852812 (Version 2)
Quarter: 2014Q1

REPORT INFORMATION
  Report Type: Spontaneous
  Country: US (occurrence: None)
  Receive Date: 20140127
  Receipt Date: 20140205
  Transmission Date: 20141002
  Serious: Yes (Death, Hospitalization)
  Sender: FDA-Public Use
  Company Number: 2013SGN00578

PATIENT
  Age: 78 Year
  Sex: Male
  Weight: 78.9 kg

DRUGS (16)
  1. BRENTUXIMAB VEDOTIN (BRENTUXIMAB VEDOTIN) INJECTION [Suspect]
     Indication: MASTOCYTOSIS
     Route: 042
     Dates: start: 20130807, end: 20130919
  2. CROMOLYN (CROMOLYN) [Concomitant]
  3. AMLODIPINE (AMLODIPINE) [Concomitant]
  4. ASPIRIN (ASPIRIN( [Concomitant]
  5. CALCIUM +VITMAMIN D (CALCIUM, COLECALIFEROL) [Concomitant]
  6. VITAMIN D (VITAMIN D) [Concomitant]
  7. LISINOPRIL (LISINOPRIL DIHYDRATE) (UNKNOWN [Concomitant]
  8. METOPROLOL (METOPROLOL) [Concomitant]
  9. PRILOSEC (OMEPRAZOLE) [Concomitant]
  10. FUROSEMIDE (FUROSEMIDE SODIUM) [Concomitant]
  11. MULTIVITAMIN (VITAMINS NOS) [Concomitant]
  12. BENADRYL (AMMONIUM CHLORIDE, DIPHENHYDRAMINE HYDROCHLORIDE, MENTHOL, SODIUM CITRATE) [Concomitant]
  13. FAMOTIDINE (FAMOTIDINE) [Concomitant]
  14. LORAZEPAM (LORAZEPAM) [Concomitant]
  15. ACETAMINOPHEN (ACETAMINOPHEN) [Concomitant]
  16. MEVACOR (LOVASTATIN) [Concomitant]

REACTIONS (15)
  - Pneumonia aspiration [None]
  - Dehydration [None]
  - Pneumonia [None]
  - Sepsis [None]
  - Vomiting [None]
  - Diarrhoea [None]
  - Haemoglobin decreased [None]
  - Gastrointestinal haemorrhage [None]
  - Hiccups [None]
  - Abdominal discomfort [None]
  - Abdominal distension [None]
  - Mastocytosis [None]
  - Disease progression [None]
  - Hypokalaemia [None]
  - Tachycardia [None]
